FAERS Safety Report 10277892 (Version 1)
Quarter: 2014Q3

REPORT INFORMATION
  Report Type: Spontaneous
  Country: GB (occurrence: GB)
  Receive Date: 20140704
  Receipt Date: 20140704
  Transmission Date: 20150326
  Serious: Yes (Other)
  Sender: FDA-Public Use
  Company Number: GB-BRISTOL-MYERS SQUIBB COMPANY-21101290

PATIENT
  Age: 60 Year
  Sex: Male
  Weight: 91 kg

DRUGS (12)
  1. TRAMADOL [Interacting]
     Active Substance: TRAMADOL
     Indication: PAIN
     Route: 048
     Dates: start: 2000, end: 20140606
  2. SALBUTAMOL [Concomitant]
     Active Substance: ALBUTEROL
  3. DABIGATRAN ETEXILATE [Interacting]
     Active Substance: DABIGATRAN ETEXILATE
  4. DOXAZOSIN [Concomitant]
     Active Substance: DOXAZOSIN\DOXAZOSIN MESYLATE
  5. OMEPRAZOLE. [Concomitant]
     Active Substance: OMEPRAZOLE
  6. NOVORAPID [Concomitant]
     Active Substance: INSULIN ASPART
  7. FORXIGA [Suspect]
     Active Substance: DAPAGLIFLOZIN
  8. BEZAFIBRATE [Concomitant]
     Active Substance: BEZAFIBRATE
  9. LANTUS [Concomitant]
     Active Substance: INSULIN GLARGINE
  10. SALMETEROL [Concomitant]
     Active Substance: SALMETEROL
  11. TIOTROPIUM BROMIDE [Concomitant]
     Active Substance: TIOTROPIUM BROMIDE
  12. RAMIPRIL. [Concomitant]
     Active Substance: RAMIPRIL

REACTIONS (4)
  - Self-injurious ideation [Recovering/Resolving]
  - Depressed mood [Recovering/Resolving]
  - Drug interaction [Unknown]
  - Blister [Recovering/Resolving]

NARRATIVE: CASE EVENT DATE: 20140501
